FAERS Safety Report 8460189-4 (Version None)
Quarter: 2012Q2

REPORT INFORMATION
  Report Type: 
  Country: None (occurrence: None)
  Receive Date: 20120622
  Receipt Date: 20120613
  Transmission Date: 20120825
  Serious: Yes (Hospitalization)
  Sender: FDA-Public Use
  Company Number: US-ABBOTT-12P-163-0945767-00

PATIENT
  Sex: Male
  Weight: 81.72 kg

DRUGS (2)
  1. HUMIRA [Suspect]
     Indication: PSORIATIC ARTHROPATHY
     Dates: start: 20100101
  2. HUMIRA [Suspect]
     Dates: start: 20120101

REACTIONS (13)
  - PNEUMONIA LEGIONELLA [None]
  - DECREASED APPETITE [None]
  - PNEUMONIA [None]
  - ASTHENIA [None]
  - NASOPHARYNGITIS [None]
  - NASAL CONGESTION [None]
  - EXPOSURE TO COMMUNICABLE DISEASE [None]
  - INFLUENZA [None]
  - PYREXIA [None]
  - NEURALGIA [None]
  - MENTAL DISORDER [None]
  - AMNESIA [None]
  - WEIGHT DECREASED [None]
